FAERS Safety Report 16076368 (Version 1)
Quarter: 2019Q1

REPORT INFORMATION
  Report Type: Spontaneous
  Country: US (occurrence: US)
  Receive Date: 20190315
  Receipt Date: 20190315
  Transmission Date: 20190418
  Serious: No
  Sender: FDA-Public Use
  Company Number: US-PFIZER INC-2019107391

PATIENT
  Age: 62 Year
  Sex: Male
  Weight: 136.8 kg

DRUGS (2)
  1. CHANTIX [Suspect]
     Active Substance: VARENICLINE TARTRATE
     Indication: EX-TOBACCO USER
     Dosage: 1 DF, DAILY
  2. CHANTIX [Suspect]
     Active Substance: VARENICLINE TARTRATE
     Dosage: 0.05 MG, UNK (TODAY IS 5TH DAY AND I ONLY TOOK ONE IN THE MORNINGI)

REACTIONS (2)
  - Anxiety [Unknown]
  - Expired product administered [Unknown]
